FAERS Safety Report 21413987 (Version 1)
Quarter: 2022Q4

REPORT INFORMATION
  Report Type: Spontaneous
  Country: US (occurrence: US)
  Receive Date: 20221006
  Receipt Date: 20221006
  Transmission Date: 20230112
  Serious: No
  Sender: FDA-Public Use
  Company Number: US-Ipsen Biopharmaceuticals, Inc.-2022-27366

PATIENT
  Age: 2 Year
  Sex: Male

DRUGS (1)
  1. INCRELEX [Suspect]
     Active Substance: MECASERMIN
     Indication: Primary insulin like growth factor-1 deficiency
     Dosage: 0.4 MG
     Route: 058
     Dates: start: 20220927

REACTIONS (2)
  - Periorbital swelling [Unknown]
  - Vomiting [Unknown]

NARRATIVE: CASE EVENT DATE: 20220101
